FAERS Safety Report 14020901 (Version 1)
Quarter: 2017Q3

REPORT INFORMATION
  Report Type: Spontaneous
  Country: TR (occurrence: TR)
  Receive Date: 20170928
  Receipt Date: 20170928
  Transmission Date: 20171128
  Serious: Yes (Other)
  Sender: FDA-Public Use
  Company Number: PHHY2017TR140419

PATIENT
  Age: 3 Year
  Sex: Female

DRUGS (2)
  1. METHYLPREDNISOLONE. [Concomitant]
     Active Substance: METHYLPREDNISOLONE
     Indication: PYREXIA
     Dosage: 1 MG/KG, ONCE/SINGLE
     Route: 065
  2. IBUPROFEN. [Suspect]
     Active Substance: IBUPROFEN
     Indication: PYREXIA
     Route: 065

REACTIONS (6)
  - Rash erythematous [Unknown]
  - Lymphadenopathy [Unknown]
  - Skin lesion [Unknown]
  - Pharyngeal erythema [Unknown]
  - Skin necrosis [Unknown]
  - Fixed eruption [Unknown]
